FAERS Safety Report 16898132 (Version 1)
Quarter: 2019Q4

REPORT INFORMATION
  Report Type: Spontaneous
  Country: US (occurrence: US)
  Receive Date: 20190815
  Receipt Date: 20190815
  Transmission Date: 20200122
  Serious: No
  Sender: FDA-Public Use
  Company Number: None

PATIENT
  Age: 56 Year
  Sex: Female

DRUGS (1)
  1. AFINITOR [Suspect]
     Active Substance: EVEROLIMUS
     Route: 048
     Dates: start: 20190507

REACTIONS (3)
  - Tongue ulceration [None]
  - Oropharyngeal pain [None]
  - Stomatitis [None]

NARRATIVE: CASE EVENT DATE: 20190507
